FAERS Safety Report 6166385-3 (Version None)
Quarter: 2009Q2

REPORT INFORMATION
  Report Type: 
  Country: None (occurrence: None)
  Receive Date: 20090424
  Receipt Date: 20081211
  Transmission Date: 20091009
  Serious: No
  Sender: FDA-Public Use
  Company Number: A0760014A

PATIENT
  Age: 53 Year
  Sex: Female

DRUGS (4)
  1. DEXEDRINE [Suspect]
     Dosage: 1.25MG FOUR TIMES PER DAY
     Route: 048
  2. DEXEDRINE [Suspect]
     Dosage: 1CAP TWICE PER DAY
     Route: 048
     Dates: start: 20050101
  3. EFFEXOR [Concomitant]
  4. WELLBUTRIN [Concomitant]

REACTIONS (4)
  - FEELING JITTERY [None]
  - INCORRECT DOSE ADMINISTERED [None]
  - MENTAL IMPAIRMENT [None]
  - SOMNOLENCE [None]
